FAERS Safety Report 6299794-2 (Version None)
Quarter: 2009Q3

REPORT INFORMATION
  Report Type: 
  Country: None (occurrence: None)
  Receive Date: 20090806
  Receipt Date: 20090727
  Transmission Date: 20100115
  Serious: Yes (Other)
  Sender: FDA-Public Use
  Company Number: US-ELI_LILLY_AND_COMPANY-US200907006098

PATIENT
  Sex: Male
  Weight: 32.653 kg

DRUGS (2)
  1. STRATTERA [Suspect]
     Indication: ATTENTION DEFICIT/HYPERACTIVITY DISORDER
     Dosage: 50 MG, DAILY (1/D)
     Route: 065
     Dates: start: 20070101
  2. STRATTERA [Suspect]
     Dosage: 50 MG, DAILY (1/D)
     Route: 065
     Dates: start: 20090725

REACTIONS (5)
  - CHEST PAIN [None]
  - CRYING [None]
  - OROPHARYNGEAL PAIN [None]
  - OVERDOSE [None]
  - PALPITATIONS [None]
